FAERS Safety Report 8407876-1 (Version None)
Quarter: 2012Q2

REPORT INFORMATION
  Report Type: 
  Country: None (occurrence: None)
  Receive Date: 20120604
  Receipt Date: 20120525
  Transmission Date: 20120825
  Serious: Yes (Hospitalization)
  Sender: FDA-Public Use
  Company Number: US-ASTRAZENECA-2012SE33932

PATIENT
  Age: 62 Year
  Sex: Female
  Weight: 88.5 kg

DRUGS (38)
  1. CRESTOR [Suspect]
     Indication: BLOOD CHOLESTEROL INCREASED
     Route: 048
     Dates: start: 20090930, end: 20101219
  2. IBUPROFEN [Suspect]
     Indication: RHEUMATOID ARTHRITIS
     Route: 065
  3. NAPROXEN [Suspect]
     Indication: OSTEOARTHRITIS
     Route: 065
  4. PLACEBO [Suspect]
     Indication: RHEUMATOID ARTHRITIS
     Route: 065
  5. HYDROCHLOROTHIAZIDE [Concomitant]
     Dates: start: 20101222
  6. CLONIDINE [Concomitant]
     Dates: start: 20020102
  7. PLACEBO [Suspect]
     Indication: OSTEOARTHRITIS
     Route: 065
  8. IRON [Concomitant]
     Dates: start: 20101222
  9. PROTONIX [Concomitant]
     Dates: start: 20101222
  10. DILANTIN [Concomitant]
     Route: 048
     Dates: start: 19780102
  11. MULTIPLE VITAMIN [Concomitant]
  12. CATAPRES [Concomitant]
     Indication: HYPERTENSION
     Route: 048
  13. SIMVASTATIN [Suspect]
     Indication: BLOOD CHOLESTEROL INCREASED
     Route: 048
     Dates: end: 20101219
  14. NEXIUM [Concomitant]
     Indication: GASTRITIS PROPHYLAXIS
  15. COLACE [Concomitant]
     Indication: DIARRHOEA
     Route: 048
  16. IBUPROFEN [Suspect]
     Indication: OSTEOARTHRITIS
     Route: 065
  17. CELECOXIB [Suspect]
     Indication: OSTEOARTHRITIS
     Route: 065
  18. AMBIEN [Concomitant]
     Indication: INSOMNIA
     Route: 048
     Dates: start: 20080601
  19. DILANTIN [Concomitant]
     Route: 048
     Dates: start: 19780102
  20. PRILOSEC [Concomitant]
     Indication: GASTROOESOPHAGEAL REFLUX DISEASE
     Route: 048
  21. LISINOPRIL [Concomitant]
     Route: 048
     Dates: start: 20101222
  22. MULTI-VITAMINS [Concomitant]
     Dates: start: 20101222
  23. CYMBALTA [Concomitant]
     Indication: DEPRESSION
     Route: 048
     Dates: start: 20100927
  24. MIRALAX [Concomitant]
     Indication: LAXATIVE SUPPORTIVE CARE
     Dosage: 1 PACK ONCE DAILY
     Route: 048
  25. ZOCOR [Concomitant]
  26. LOTENSIN [Concomitant]
  27. FLEXERIL [Concomitant]
     Indication: MUSCLE RELAXANT THERAPY
     Route: 048
  28. NAPROXEN [Suspect]
     Indication: RHEUMATOID ARTHRITIS
     Route: 065
  29. PREMARIN [Concomitant]
     Indication: BLOOD OESTROGEN DECREASED
     Route: 048
     Dates: start: 19980102
  30. ALLEGRA [Concomitant]
     Dates: start: 20030102
  31. LOTENSIN HCT [Concomitant]
     Indication: HYPERTENSION
     Route: 048
     Dates: start: 19780602
  32. BUSPAR [Concomitant]
     Indication: ANXIETY
     Route: 048
  33. METAMUCIL-2 [Concomitant]
     Indication: DIARRHOEA
     Route: 048
  34. CELECOXIB [Suspect]
     Indication: RHEUMATOID ARTHRITIS
     Route: 065
  35. DOCUSATE [Concomitant]
     Dates: start: 20101222
  36. PHOSLO [Concomitant]
     Dates: start: 20101219
  37. PSYLLIUM [Concomitant]
  38. FERROUS SULFATE TAB [Concomitant]
     Indication: BLOOD IRON
     Route: 048

REACTIONS (3)
  - HEPATIC FAILURE [None]
  - RENAL FAILURE [None]
  - TOXIC ENCEPHALOPATHY [None]
